FAERS Safety Report 5242307-4 (Version None)
Quarter: 2007Q1

REPORT INFORMATION
  Report Type: 
  Country: None (occurrence: None)
  Receive Date: 20070216
  Receipt Date: 20070216
  Transmission Date: 20070707
  Serious: Yes (Hospitalization)
  Sender: FDA-Public Use
  Company Number: None

PATIENT
  Age: 83 Year
  Sex: Male

DRUGS (6)
  1. PHENYTOIN [Suspect]
     Indication: CONVULSION
     Dosage: 300 MG QD
     Dates: start: 20050301
  2. FOLIC ACID [Concomitant]
  3. VIT B 12 [Concomitant]
  4. TYLENOL [Concomitant]
  5. OMEPRAZOLE [Concomitant]
  6. FERROUS SULFATE TAB [Concomitant]

REACTIONS (1)
  - UNEVALUABLE EVENT [None]
